FAERS Safety Report 8326775-7 (Version None)
Quarter: 2012Q2

REPORT INFORMATION
  Report Type: 
  Country: None (occurrence: None)
  Receive Date: 20120501
  Receipt Date: 20120420
  Transmission Date: 20120825
  Serious: Yes (Other)
  Sender: FDA-Public Use
  Company Number: CA-CELGENEUS-028-20785-12012044

PATIENT
  Age: 58 Year
  Sex: Male

DRUGS (6)
  1. GRANULOCYTE COLONY STIMULATING FACTOR [Suspect]
     Route: 065
  2. MELPHALAN HYDROCHLORIDE [Suspect]
     Dosage: 200 MILLIGRAM/SQ. METER
     Route: 065
  3. DEXAMETHASONE [Suspect]
     Route: 065
  4. PAMIDRONATE DISODIUM [Suspect]
     Indication: MULTIPLE MYELOMA
     Route: 065
  5. CYCLOPHOSPHAMIDE [Suspect]
     Route: 065
  6. THALOMID [Suspect]
     Route: 048

REACTIONS (10)
  - DEPRESSED MOOD [None]
  - FATIGUE [None]
  - VIITH NERVE PARALYSIS [None]
  - CONCOMITANT DISEASE AGGRAVATED [None]
  - VIIITH NERVE LESION [None]
  - LETHARGY [None]
  - IIIRD NERVE PARALYSIS [None]
  - NAUSEA [None]
  - VOMITING [None]
  - RADIATION NECROSIS [None]
